FAERS Safety Report 20840856 (Version 1)
Quarter: 2022Q2

REPORT INFORMATION
  Report Type: Spontaneous
  Country: AR (occurrence: AR)
  Receive Date: 20220517
  Receipt Date: 20220517
  Transmission Date: 20220720
  Serious: Yes (Other)
  Sender: FDA-Public Use
  Company Number: AR-PFIZER INC-202200660670

PATIENT
  Age: 56 Year
  Sex: Female

DRUGS (2)
  1. IBRANCE [Suspect]
     Active Substance: PALBOCICLIB
     Indication: Breast cancer metastatic
     Dosage: 125 MG, DAILY 3X1 SCHEME
     Dates: start: 20220323
  2. LETROZOLE [Concomitant]
     Active Substance: LETROZOLE
     Dosage: UNK

REACTIONS (5)
  - Second primary malignancy [Unknown]
  - Lymphoma [Unknown]
  - Lymphadenopathy [Not Recovered/Not Resolved]
  - Malaise [Unknown]
  - Depressed mood [Unknown]

NARRATIVE: CASE EVENT DATE: 20220101
